FAERS Safety Report 8390353-4 (Version None)
Quarter: 2012Q2

REPORT INFORMATION
  Report Type: 
  Country: None (occurrence: None)
  Receive Date: 20120529
  Receipt Date: 20120524
  Transmission Date: 20120825
  Serious: Yes (Other)
  Sender: FDA-Public Use
  Company Number: US-BAYER-2012-052038

PATIENT
  Age: 37 Year
  Sex: Male

DRUGS (1)
  1. MAGNEVIST [Suspect]
     Indication: NUCLEAR MAGNETIC RESONANCE IMAGING
     Dosage: 26 ML, ONCE
     Route: 042
     Dates: start: 20120524, end: 20120524

REACTIONS (3)
  - THROAT TIGHTNESS [None]
  - VOMITING [None]
  - DYSPNOEA [None]
